FAERS Safety Report 21283772 (Version 1)
Quarter: 2022Q3

REPORT INFORMATION
  Report Type: Spontaneous
  Country: US (occurrence: US)
  Receive Date: 20220901
  Receipt Date: 20220901
  Transmission Date: 20221027
  Serious: Yes (Other)
  Sender: FDA-Public Use
  Company Number: US-ABBVIE-21K-163-4205397-00

PATIENT
  Sex: Female

DRUGS (1)
  1. IMBRUVICA [Suspect]
     Active Substance: IBRUTINIB
     Indication: Product used for unknown indication
     Route: 048
     Dates: start: 202107, end: 202112

REACTIONS (6)
  - Oral herpes [Unknown]
  - Nasal herpes [Unknown]
  - Product use complaint [Unknown]
  - Blood blister [Unknown]
  - Skin fissures [Recovering/Resolving]
  - Pain of skin [Unknown]

NARRATIVE: CASE EVENT DATE: 20210101
